FAERS Safety Report 25102915 (Version 3)
Quarter: 2025Q3

REPORT INFORMATION
  Report Type: Spontaneous
  Country: TW (occurrence: TW)
  Receive Date: 20250321
  Receipt Date: 20250901
  Transmission Date: 20251020
  Serious: Yes (Other)
  Sender: ALCON
  Company Number: TW-ALCON LABORATORIES-ALC2025TW001556

PATIENT
  Age: 53 Year
  Sex: Male

DRUGS (2)
  1. BSS [Suspect]
     Active Substance: CALCIUM CHLORIDE\MAGNESIUM CHLORIDE\POTASSIUM CHLORIDE\SODIUM ACETATE\SODIUM CHLORIDE\SODIUM CITRATE
     Indication: Cataract operation
     Route: 047
  2. DIMETHICONE [Suspect]
     Active Substance: DIMETHICONE
     Indication: Cataract operation
     Route: 047

REACTIONS (3)
  - Thermal burns of eye [Recovered/Resolved]
  - Eye injury [Recovered/Resolved]
  - Scar [Unknown]
